FAERS Safety Report 12261406 (Version 5)
Quarter: 2024Q3

REPORT INFORMATION
  Report Type: Spontaneous
  Country: JP (occurrence: JP)
  Receive Date: 20160412
  Receipt Date: 20240805
  Transmission Date: 20241017
  Serious: Yes (Hospitalization)
  Sender: MERCK
  Company Number: JP-009507513-1604JPN006891

PATIENT
  Age: 70 Year
  Sex: Female

DRUGS (4)
  1. EMEND [Interacting]
     Active Substance: APREPITANT
     Indication: Prophylaxis of nausea and vomiting
     Dosage: UNK
     Route: 048
  2. WARFARIN POTASSIUM [Interacting]
     Active Substance: WARFARIN POTASSIUM
     Route: 048
  3. CAPECITABINE [Concomitant]
     Active Substance: CAPECITABINE
     Route: 048
  4. OXALIPLATIN [Concomitant]
     Active Substance: OXALIPLATIN

REACTIONS (2)
  - Prothrombin time prolonged [Unknown]
  - Drug interaction [Unknown]
